FAERS Safety Report 6619945-7 (Version None)
Quarter: 2010Q1

REPORT INFORMATION
  Report Type: 
  Country: None (occurrence: None)
  Receive Date: 20100304
  Receipt Date: 20100218
  Transmission Date: 20100710
  Serious: Yes (Hospitalization)
  Sender: FDA-Public Use
  Company Number: KV200801115

PATIENT
  Age: 43 Year
  Sex: Female
  Weight: 127 kg

DRUGS (16)
  1. MORPHINE SULFATE [Suspect]
     Indication: PAIN
     Dosage: 15 MG, QID, ORAL
     Route: 048
     Dates: start: 19960101
  2. NEXIUM [Concomitant]
  3. REQUIP [Concomitant]
  4. AMBIEN [Concomitant]
  5. XANAX [Concomitant]
  6. TOPAMAX [Concomitant]
  7. CYMBALTA [Concomitant]
  8. KADIAN [Concomitant]
  9. BACLOFEN [Concomitant]
  10. LODINE [Concomitant]
  11. MVI (VITAMINS NOS) [Concomitant]
  12. CALCIUM (CALCIUM) [Concomitant]
  13. SENOKOT /00142201/ (SENNA ALEXANDRINA) [Concomitant]
  14. OXYCODONE WITH APAP (OXYCODONE HYDROCHLORIDE, PARACETAMOL) [Concomitant]
  15. CEPHALEXIN /00145501/ (CEFALEXIN) [Concomitant]
  16. HYDROCODONE W/APAP (HYDROCODONE, PARACETAMOL) [Concomitant]

REACTIONS (13)
  - ABDOMINAL PAIN UPPER [None]
  - CHEST PAIN [None]
  - DIZZINESS [None]
  - DRUG WITHDRAWAL SYNDROME [None]
  - DYSPNOEA [None]
  - HEART RATE INCREASED [None]
  - HYPERHIDROSIS [None]
  - HYPERTENSION [None]
  - NAUSEA [None]
  - OEDEMA PERIPHERAL [None]
  - PAIN [None]
  - PANIC ATTACK [None]
  - PRODUCT SUBSTITUTION ISSUE [None]
